FAERS Safety Report 8428841 (Version 3)
Quarter: 2012Q4

REPORT INFORMATION
  Report Type: 
  Country: US (occurrence: US)
  Receive Date: 20120227
  Receipt Date: 20120911
  Transmission Date: 20130627
  Serious: Yes (Hospitalization)
  Sender: FDA-Public Use
  Company Number: US-BAYER-2012-017527

PATIENT
  Age: 24 Year
  Sex: Female
  Weight: 53.52 kg

DRUGS (10)
  1. YASMIN [Suspect]
     Indication: CONTRACEPTION
     Dosage: UNK
     Dates: start: 20051117, end: 200711
  2. YASMIN [Suspect]
     Indication: ACNE
  3. YAZ [Suspect]
     Indication: CONTRACEPTION
     Dosage: UNK
     Dates: start: 200801, end: 200803
  4. YAZ [Suspect]
     Indication: ACNE
  5. OCELLA [Suspect]
     Indication: CONTRACEPTION
     Dosage: UNK
     Dates: start: 20090111, end: 20090405
  6. OCELLA [Suspect]
     Indication: ACNE
  7. SOLODYN [Concomitant]
     Dosage: 45 mg, UNK
  8. MINOCYCLINE [Concomitant]
     Dosage: UNK
     Dates: start: 20090212, end: 20090427
  9. CITALOPRAM [Concomitant]
     Indication: ANXIETY
     Dosage: UNK
     Dates: start: 20090108, end: 20100307
  10. CITALOPRAM [Concomitant]
     Indication: PREMENSTRUAL SYNDROME

REACTIONS (11)
  - Cerebrovascular accident [None]
  - Pain [None]
  - Emotional distress [None]
  - General physical health deterioration [None]
  - Anxiety [None]
  - Injury [None]
  - Aphasia [None]
  - Dysarthria [None]
  - Hemiparesis [None]
  - Fear [None]
  - Headache [None]
